FAERS Safety Report 14576594 (Version 1)
Quarter: 2018Q1

REPORT INFORMATION
  Report Type: Spontaneous
  Country: US (occurrence: US)
  Receive Date: 20180224
  Receipt Date: 20180224
  Transmission Date: 20180509
  Serious: Yes (Death)
  Sender: FDA-Public Use
  Company Number: None

PATIENT
  Age: 35 Year
  Sex: Female

DRUGS (2)
  1. NEUPOGEN [Suspect]
     Active Substance: FILGRASTIM
     Indication: BREAST CANCER
     Dosage: DOSE - 1 SYRINGE?ROUTE - UNKNOWN?FREQUENCY - X 2 DAYS AFTER CHEMO
     Dates: start: 20170217
  2. FEMARA [Concomitant]
     Active Substance: LETROZOLE

REACTIONS (1)
  - Death [None]

NARRATIVE: CASE EVENT DATE: 20180212
